FAERS Safety Report 7353696-9 (Version None)
Quarter: 2011Q1

REPORT INFORMATION
  Report Type: 
  Country: None (occurrence: None)
  Receive Date: 20110315
  Receipt Date: 20091120
  Transmission Date: 20110831
  Serious: Yes (Other)
  Sender: FDA-Public Use
  Company Number: US-BAYER-200940879NA

PATIENT
  Sex: Female
  Weight: 79 kg

DRUGS (28)
  1. GLYBURIDE [Concomitant]
     Route: 048
  2. BENADRYL [Concomitant]
     Dosage: 50 MG, UNK
     Route: 042
     Dates: start: 20051228, end: 20051228
  3. PLAVIX [Concomitant]
     Dosage: 75 MG, DAILY
     Route: 048
     Dates: start: 20051026
  4. NORVASC [Concomitant]
     Dosage: 10 MG, BID
     Route: 048
  5. ACTOS [Concomitant]
     Dosage: 30 MG, DAILY
     Route: 048
  6. INSULIN [Concomitant]
     Dosage: UNK
     Route: 042
     Dates: start: 20051228, end: 20051228
  7. TRASYLOL [Suspect]
     Indication: CORONARY ARTERY BYPASS
     Dosage: UNK
     Route: 042
     Dates: start: 20051219
  8. PRINZIDE [Concomitant]
     Dosage: 20/25 MG TWICE DAILY
     Route: 048
  9. PROTONIX [Concomitant]
     Dosage: 40 MG, DAILY
     Route: 048
  10. TOPROL-XL [Concomitant]
     Dosage: 200 MG, DAILY
     Route: 048
  11. OMNIPAQUE 140 [Concomitant]
     Dosage: 165 ML, UNK
  12. METFORMIN [Concomitant]
     Dosage: 500 MG, BID
     Route: 048
  13. ZOCOR [Concomitant]
     Dosage: 20 MG, BEDTIME
     Route: 048
     Dates: start: 20051026
  14. PAVULON [Concomitant]
     Dosage: 10 MG, UNK
     Route: 042
     Dates: start: 20051228, end: 20051228
  15. MANNITOL [Concomitant]
     Dosage: 12.5 G, UNK
     Route: 042
     Dates: start: 20051228, end: 20051228
  16. AMICAR [Concomitant]
     Dosage: 5 G, UNK
     Route: 042
     Dates: start: 20051228, end: 20051228
  17. AMICAR [Concomitant]
     Dosage: 30 CC/HR
     Dates: start: 20051228, end: 20051228
  18. ACETYLSALICYLIC ACID SRT [Concomitant]
     Dosage: 81 MG, DAILY
  19. TRAZODONE [Concomitant]
     Dosage: 100 MG, BEDTIME
     Route: 048
  20. CALCIUM CHLORIDE [Concomitant]
     Dosage: 1 G, UNK
     Route: 042
     Dates: start: 20051228, end: 20051228
  21. VANCOMYCIN [Concomitant]
     Dosage: 1 G, UNK
     Route: 042
     Dates: start: 20051228, end: 20051228
  22. PEPCID [Concomitant]
     Dosage: 20 MG, UNK
     Route: 042
     Dates: start: 20051228, end: 20051228
  23. LEXAPRO [Concomitant]
     Dosage: 10 MG, DAILY
     Route: 048
  24. LACTATED RINGER'S [Concomitant]
     Dosage: UNK
     Route: 042
     Dates: start: 20051228
  25. HYDROCHLOROTHIAZIDE [Concomitant]
     Dosage: 25 MG, DAILY
     Route: 048
  26. SOLU-MEDROL [Concomitant]
     Dosage: UNK
     Route: 042
     Dates: start: 20051228, end: 20051228
  27. PROTAMINE SULFATE [Concomitant]
     Dosage: 250 MG, UNK
     Route: 042
     Dates: start: 20051228, end: 20051228
  28. POTASSIUM CHLORIDE [Concomitant]
     Dosage: 20 MEQ, UNK
     Route: 042
     Dates: start: 20051228, end: 20051228

REACTIONS (11)
  - RENAL INJURY [None]
  - DEPRESSION [None]
  - DISABILITY [None]
  - INJURY [None]
  - ANXIETY [None]
  - PAIN [None]
  - RENAL FAILURE [None]
  - MULTI-ORGAN FAILURE [None]
  - UNEVALUABLE EVENT [None]
  - ANHEDONIA [None]
  - FEAR [None]
